FAERS Safety Report 9177097 (Version 3)
Quarter: 2013Q2

REPORT INFORMATION
  Report Type: Report from Study
  Country: CA (occurrence: CA)
  Receive Date: 20130321
  Receipt Date: 20130510
  Transmission Date: 20140414
  Serious: Yes (Other)
  Sender: FDA-Public Use
  Company Number: PHHY2013CA023748

PATIENT
  Age: 69 Year
  Sex: Female

DRUGS (11)
  1. TOBI PODHALER [Suspect]
     Indication: PSEUDOMONAS BRONCHITIS
     Dosage: INITIAL TEST DOSE 56 MG
     Dates: start: 201208
  2. TOBI PODHALER [Suspect]
     Dosage: 28 MG, BID
     Dates: end: 201211
  3. SPIRIVA [Concomitant]
     Dosage: 1 DF, QD
  4. LOSEC//OMEPRAZOLE [Concomitant]
     Dosage: 20 MG, QD
  5. ATACAND [Concomitant]
     Dosage: 12.5 MG, QD
  6. LIPITOR [Concomitant]
     Dosage: 80 MG, QD
  7. ZOPICLONE [Concomitant]
     Dosage: 7.5 MG, QD
  8. ATIVAN [Concomitant]
     Dosage: 1 MG, PRN
     Route: 048
  9. ASPIRIN [Concomitant]
     Dosage: 81 MG, QD
  10. TAMSULOSIN [Concomitant]
     Dosage: 0.4 MG, QD
  11. FINASTERIDE [Concomitant]
     Dosage: 5 MG, QD

REACTIONS (7)
  - Nephropathy toxic [Recovered/Resolved]
  - Tinnitus [Recovered/Resolved]
  - Creatinine renal clearance decreased [Unknown]
  - Dry skin [Unknown]
  - Chills [Unknown]
  - Cough [Unknown]
  - Chest discomfort [Unknown]
